FAERS Safety Report 4809879-2 (Version None)
Quarter: 2005Q4

REPORT INFORMATION
  Report Type: 
  Country: None (occurrence: None)
  Receive Date: 20051024
  Receipt Date: 20051013
  Transmission Date: 20060501
  Serious: Yes (Other)
  Sender: FDA-Public Use
  Company Number: 2005142180

PATIENT
  Sex: Female

DRUGS (2)
  1. BEXTRA [Suspect]
     Indication: INFLAMMATION
     Dates: start: 20020101
  2. BEXTRA [Suspect]
     Indication: PAIN
     Dates: start: 20020101

REACTIONS (1)
  - CEREBROVASCULAR ACCIDENT [None]
